FAERS Safety Report 25549561 (Version 2)
Quarter: 2025Q3

REPORT INFORMATION
  Report Type: Spontaneous
  Country: EU (occurrence: EU)
  Receive Date: 20250714
  Receipt Date: 20250805
  Transmission Date: 20251021
  Serious: Yes (Hospitalization, Other)
  Sender: MSN LABORATORIES PRIVATE LIMITED
  Company Number: EU-MSNLABS-2025MSNLIT01740

PATIENT

DRUGS (1)
  1. DIMETHYL FUMARATE [Suspect]
     Active Substance: DIMETHYL FUMARATE
     Indication: Relapsing-remitting multiple sclerosis
     Route: 048
     Dates: start: 20230413, end: 20230919

REACTIONS (6)
  - Angiopathy [Recovered/Resolved]
  - Varicella zoster virus infection [Recovered/Resolved]
  - Hemiparesis [Not Recovered/Not Resolved]
  - Hemianopia [Unknown]
  - Viral uveitis [Unknown]
  - Herpes zoster reactivation [Unknown]
